FAERS Safety Report 8717974 (Version 2)
Quarter: 2013Q4

REPORT INFORMATION
  Report Type: Report from Study
  Country: JP (occurrence: JP)
  Receive Date: 20120810
  Receipt Date: 20131106
  Transmission Date: 20140711
  Serious: Yes (Hospitalization, Other)
  Sender: FDA-Public Use
  Company Number: JP-009507513-1208JPN004506

PATIENT
  Age: 64 Year
  Sex: Male
  Weight: 73 kg

DRUGS (7)
  1. PEGINTRON [Suspect]
     Indication: HEPATITIS C
     Dosage: 1.5MCG/KG/WEEK
     Route: 058
     Dates: start: 20120215, end: 20120410
  2. PEGINTRON [Suspect]
     Indication: HEPATITIS C
     Dosage: 1.5MCG/KG
     Route: 058
     Dates: start: 20120424
  3. REBETOL [Suspect]
     Indication: HEPATITIS C
     Route: 048
     Dates: start: 20120215, end: 20120228
  4. REBETOL [Suspect]
     Indication: HEPATITIS C
     Route: 048
     Dates: start: 20120229
  5. REBETOL [Suspect]
     Route: 048
     Dates: start: 20120403
  6. TELAVIC [Suspect]
     Indication: HEPATITIS C
     Route: 048
     Dates: start: 20120215, end: 20120416
  7. TELAVIC [Suspect]
     Route: 048
     Dates: start: 20120417

REACTIONS (6)
  - Renal impairment [Not Recovered/Not Resolved]
  - Rash [Not Recovered/Not Resolved]
  - Anaemia [Not Recovered/Not Resolved]
  - Oedema due to hepatic disease [Recovered/Resolved]
  - Ascites [Recovered/Resolved]
  - Cellulitis [Recovered/Resolved]
